FAERS Safety Report 7462101-3 (Version None)
Quarter: 2011Q2

REPORT INFORMATION
  Report Type: 
  Country: None (occurrence: None)
  Receive Date: 20110506
  Receipt Date: 20101208
  Transmission Date: 20111010
  Serious: Yes (Hospitalization, Other)
  Sender: FDA-Public Use
  Company Number: US-BAYER-201033837NA

PATIENT
  Age: 30 Year
  Sex: Female
  Weight: 108.84 kg

DRUGS (15)
  1. YAZ [Suspect]
     Indication: CONTRACEPTION
     Dosage: 3 MG, QD
     Route: 048
     Dates: start: 20050101, end: 20091101
  2. YASMIN [Suspect]
     Indication: CONTRACEPTION
     Dosage: 3 MG, QD
     Route: 048
     Dates: start: 20050101, end: 20091101
  3. TOPAMAX [Concomitant]
     Indication: HEADACHE
     Dosage: 50 MG, BID
     Route: 048
  4. NEXIUM [Concomitant]
     Dosage: 40 MG, QD
     Route: 048
  5. IBUPROFEN [Concomitant]
     Dosage: UNK UNK, PRN
  6. DROSPIRENONE AND ETHINYL ESTRADIOL [Suspect]
     Indication: CONTRACEPTION
     Dosage: 3 MG, QD
     Route: 048
     Dates: start: 20050101, end: 20091101
  7. HYDROCHLOROTHIAZIDE [Concomitant]
     Indication: DIURETIC THERAPY
     Dosage: 15 MG, QD
     Route: 048
  8. LEVAQUIN [Concomitant]
     Dosage: 5 MG/ML, UNK
     Route: 042
  9. K-DUR [Concomitant]
     Dosage: 20 MEQ, UNK
     Route: 048
  10. LEXAPRO [Concomitant]
     Indication: DEPRESSION
     Dosage: 10 MG, QD
     Route: 048
  11. PREVACID [Concomitant]
     Indication: DYSPEPSIA
     Dosage: UNK
     Dates: start: 20080101
  12. PHENERGAN HCL [Concomitant]
     Indication: NAUSEA
     Dosage: 25 MG, PRN
     Route: 048
  13. ZOFRAN [Concomitant]
     Indication: VOMITING
  14. PHENERGAN HCL [Concomitant]
     Indication: VOMITING
  15. ZOFRAN [Concomitant]
     Indication: NAUSEA
     Dosage: 4 MG, PRN
     Route: 042

REACTIONS (3)
  - PAIN [None]
  - CHOLECYSTITIS [None]
  - GALLBLADDER DISORDER [None]
